FAERS Safety Report 15809307 (Version 2)
Quarter: 2019Q2

REPORT INFORMATION
  Report Type: Spontaneous
  Country: SE (occurrence: SE)
  Receive Date: 20190110
  Receipt Date: 20190509
  Transmission Date: 20190711
  Serious: Yes (Hospitalization)
  Sender: FDA-Public Use
  Company Number: SE-MYLANLABS-2019M1001919

PATIENT
  Age: 71 Year
  Sex: Male

DRUGS (4)
  1. ATORVASTATIN [Suspect]
     Active Substance: ATORVASTATIN
     Indication: HYPERLIPIDAEMIA
     Dosage: 40 MILLIGRAM, QD
     Route: 048
  2. ATORVASTATIN [Suspect]
     Active Substance: ATORVASTATIN
     Dosage: 80 MILLIGRAM, QD
     Route: 048
     Dates: start: 20170101, end: 20181001
  3. BEHEPAN                            /00056201/ [Concomitant]
     Active Substance: CYANOCOBALAMIN
     Dosage: UNK
  4. METFORMIN [Concomitant]
     Active Substance: METFORMIN HYDROCHLORIDE
     Dosage: UNK

REACTIONS (1)
  - Immune-mediated necrotising myopathy [Not Recovered/Not Resolved]

NARRATIVE: CASE EVENT DATE: 20180901
